FAERS Safety Report 22308238 (Version 1)
Quarter: 2023Q2

REPORT INFORMATION
  Report Type: Spontaneous
  Country: PT (occurrence: PT)
  Receive Date: 20230511
  Receipt Date: 20230511
  Transmission Date: 20230722
  Serious: Yes (Death, Other)
  Sender: FDA-Public Use
  Company Number: PT-GILEAD-2023-0627922

PATIENT
  Age: 63 Year
  Sex: Male

DRUGS (1)
  1. ZYDELIG [Suspect]
     Active Substance: IDELALISIB
     Indication: Chronic lymphocytic leukaemia
     Dosage: UNK
     Route: 065

REACTIONS (2)
  - Pneumonia pseudomonal [Fatal]
  - Disease progression [Not Recovered/Not Resolved]
